FAERS Safety Report 5883769-9 (Version None)
Quarter: 2008Q3

REPORT INFORMATION
  Report Type: 
  Country: None (occurrence: None)
  Receive Date: 20080915
  Receipt Date: 20080901
  Transmission Date: 20090109
  Serious: Yes (Hospitalization)
  Sender: FDA-Public Use
  Company Number: KR-AMGEN-US293961

PATIENT
  Sex: Female
  Weight: 44.9 kg

DRUGS (5)
  1. ETANERCEPT [Suspect]
     Indication: RHEUMATOID ARTHRITIS
     Route: 058
     Dates: start: 20080603, end: 20080622
  2. MISOPROSTOL [Concomitant]
     Indication: PROPHYLAXIS
     Route: 048
     Dates: start: 20060809
  3. FOLATE SODIUM [Concomitant]
     Indication: PROPHYLAXIS
     Route: 048
     Dates: start: 20030108
  4. METHOTREXATE [Concomitant]
     Indication: RHEUMATOID ARTHRITIS
     Route: 048
     Dates: start: 20080220, end: 20080627
  5. LEVOTHYROXINE SODIUM [Concomitant]
     Indication: HYPOTHYROIDISM
     Route: 048
     Dates: start: 20020313

REACTIONS (1)
  - PNEUMOCYSTIS JIROVECI PNEUMONIA [None]
